FAERS Safety Report 14588144 (Version 1)
Quarter: 2018Q1

REPORT INFORMATION
  Report Type: Spontaneous
  Country: US (occurrence: US)
  Receive Date: 20180301
  Receipt Date: 20180301
  Transmission Date: 20180509
  Serious: No
  Sender: FDA-Public Use
  Company Number: US-PERRIGO-17US024425

PATIENT
  Sex: Male

DRUGS (1)
  1. TESTOSTERONE CYPIONATE. [Suspect]
     Active Substance: TESTOSTERONE CYPIONATE
     Indication: PRODUCT USED FOR UNKNOWN INDICATION
     Dosage: 300 MG, EVERY 2 WEEKS
     Route: 030
     Dates: start: 2017

REACTIONS (3)
  - Skin burning sensation [Unknown]
  - Scleral discolouration [Unknown]
  - Myalgia [Unknown]

NARRATIVE: CASE EVENT DATE: 2017
